FAERS Safety Report 22639781 (Version 1)
Quarter: 2023Q2

REPORT INFORMATION
  Report Type: Spontaneous
  Country: US (occurrence: US)
  Receive Date: 20230626
  Receipt Date: 20230626
  Transmission Date: 20230722
  Serious: Yes (Other)
  Sender: FDA-Public Use
  Company Number: US-PFIZER INC-202300228883

PATIENT
  Age: 55 Year
  Sex: Female

DRUGS (2)
  1. OXBRYTA [Interacting]
     Active Substance: VOXELOTOR
     Dosage: 1500 MG, 1X/DAY (500MG 3 TABS ONCE DAILY)
     Route: 048
  2. IRON [Interacting]
     Active Substance: IRON
     Dosage: UNK

REACTIONS (3)
  - Drug interaction [Unknown]
  - Haemoglobin increased [Unknown]
  - Sickle cell anaemia with crisis [Unknown]
